FAERS Safety Report 6733685-5 (Version None)
Quarter: 2010Q2

REPORT INFORMATION
  Report Type: 
  Country: None (occurrence: None)
  Receive Date: 20100520
  Receipt Date: 20100409
  Transmission Date: 20101027
  Serious: Yes (Death, Other)
  Sender: FDA-Public Use
  Company Number: US-BAXTER-2009BH017007

PATIENT
  Age: 80 Year
  Sex: Female
  Weight: 74 kg

DRUGS (7)
  1. HEPARIN SODIUM 5,000 UNITS IN DEXTROSE 5% [Suspect]
     Indication: MYOCARDIAL INFARCTION
     Route: 042
     Dates: start: 20071105, end: 20071106
  2. HEPARIN SODIUM 5,000 UNITS IN DEXTROSE 5% [Suspect]
     Route: 042
     Dates: start: 20071106, end: 20071111
  3. ANGIOMAX [Suspect]
     Indication: CATHETERISATION CARDIAC
     Route: 042
     Dates: start: 20071105, end: 20071105
  4. ANGIOMAX [Suspect]
     Indication: STENT PLACEMENT
     Route: 042
     Dates: start: 20071105, end: 20071105
  5. ANGIOMAX [Suspect]
     Route: 042
     Dates: start: 20071105, end: 20071105
  6. ANGIOMAX [Suspect]
     Route: 042
     Dates: start: 20071105, end: 20071105
  7. SEROQUEL [Concomitant]
     Indication: DEPRESSION
     Route: 048

REACTIONS (12)
  - ANOXIC ENCEPHALOPATHY [None]
  - CEREBROVASCULAR ACCIDENT [None]
  - COAGULOPATHY [None]
  - HAEMATOMA [None]
  - HYPOTENSION [None]
  - MENTAL DISORDER [None]
  - MULTI-ORGAN FAILURE [None]
  - MYOCARDIAL INFARCTION [None]
  - PERIPHERAL EMBOLISM [None]
  - PNEUMONIA ASPIRATION [None]
  - RESPIRATORY FAILURE [None]
  - UNRESPONSIVE TO STIMULI [None]
